FAERS Safety Report 23981937 (Version 3)
Quarter: 2024Q4

REPORT INFORMATION
  Report Type: Spontaneous
  Country: US (occurrence: US)
  Receive Date: 20240617
  Receipt Date: 20241107
  Transmission Date: 20250114
  Serious: Yes (Other)
  Sender: VERTEX
  Company Number: US-VERTEX PHARMACEUTICALS-2024-009896

PATIENT

DRUGS (1)
  1. TRIKAFTA [Suspect]
     Active Substance: ELEXACAFTOR\IVACAFTOR\TEZACAFTOR
     Indication: Cystic fibrosis
     Dosage: UNKNOWN DOSAGE REGIMEN
     Route: 048

REACTIONS (3)
  - Pulmonary haemorrhage [Recovered/Resolved]
  - Infective pulmonary exacerbation of cystic fibrosis [Unknown]
  - Abdominal distension [Unknown]
